FAERS Safety Report 4997210-1 (Version None)
Quarter: 2006Q2

REPORT INFORMATION
  Report Type: 
  Country: None (occurrence: None)
  Receive Date: 20060505
  Receipt Date: 20060505
  Transmission Date: 20061013
  Serious: Yes (Life-Threatening)
  Sender: FDA-Public Use
  Company Number: None

PATIENT
  Age: 62 Year
  Sex: Female
  Weight: 81.2 kg

DRUGS (2)
  1. DEPODUR [Suspect]
     Indication: PAIN
     Dosage: 10MG ONE TIME EPIDURAL
     Route: 008
     Dates: start: 20060403, end: 20060403
  2. MORPHINE [Concomitant]

REACTIONS (7)
  - CARDIO-RESPIRATORY ARREST [None]
  - COMA [None]
  - DEPRESSED LEVEL OF CONSCIOUSNESS [None]
  - LETHARGY [None]
  - POST PROCEDURAL COMPLICATION [None]
  - RESPIRATION ABNORMAL [None]
  - RESPIRATORY DISORDER [None]
